FAERS Safety Report 6840899-2 (Version None)
Quarter: 2010Q3

REPORT INFORMATION
  Report Type: 
  Country: None (occurrence: None)
  Receive Date: 20100714
  Receipt Date: 20070615
  Transmission Date: 20110219
  Serious: No
  Sender: FDA-Public Use
  Company Number: US-PFIZER INC-2007051387

PATIENT
  Sex: Female
  Weight: 73.6 kg

DRUGS (4)
  1. CHANTIX [Suspect]
     Indication: SMOKING CESSATION THERAPY
     Dates: start: 20070501
  2. SYNTHROID [Concomitant]
  3. GLYCERYL TRINITRATE [Concomitant]
     Route: 061
  4. CARDIOVASCULAR SYSTEM DRUGS [Concomitant]
     Indication: BLOOD PRESSURE ABNORMAL

REACTIONS (1)
  - NAUSEA [None]
